APPROVED DRUG PRODUCT: ACYCLOVIR
Active Ingredient: ACYCLOVIR
Strength: 200MG/5ML
Dosage Form/Route: SUSPENSION;ORAL
Application: A074738 | Product #001 | TE Code: AB
Applicant: ACTAVIS MID ATLANTIC LLC
Approved: Apr 28, 1997 | RLD: No | RS: No | Type: RX